FAERS Safety Report 4353786-9 (Version None)
Quarter: 2004Q2

REPORT INFORMATION
  Report Type: 
  Country: None (occurrence: None)
  Receive Date: 20040430
  Receipt Date: 20031001
  Transmission Date: 20050107
  Serious: Yes (Other)
  Sender: FDA-Public Use
  Company Number: US049951

PATIENT
  Age: 62 Year
  Sex: Female
  Weight: 56.3 kg

DRUGS (4)
  1. EPOGEN [Suspect]
     Indication: DIALYSIS
     Dosage: 10000 U, WEEKLY, SC
     Route: 058
     Dates: start: 20020603
  2. FOLIC ACID [Concomitant]
  3. LEVOTHYROXINE SODIUM [Concomitant]
  4. SEVELAMER HCL [Concomitant]

REACTIONS (2)
  - GASTROINTESTINAL HAEMORRHAGE [None]
  - THERAPEUTIC RESPONSE DECREASED [None]
